FAERS Safety Report 6185942-1 (Version None)
Quarter: 2009Q2

REPORT INFORMATION
  Report Type: 
  Country: None (occurrence: None)
  Receive Date: 20090511
  Receipt Date: 20090511
  Transmission Date: 20091009
  Serious: Yes (Hospitalization)
  Sender: FDA-Public Use
  Company Number: US-PFIZER INC-2009188116

PATIENT
  Sex: Male
  Weight: 108.84 kg

DRUGS (2)
  1. VIAGRA [Suspect]
     Indication: ERECTILE DYSFUNCTION
     Dosage: 50 MG, AS NEEDED
  2. METFORMIN [Concomitant]
     Dosage: UNK

REACTIONS (5)
  - DIABETIC COMA [None]
  - DRUG INEFFECTIVE [None]
  - FALL [None]
  - NEUROPATHY PERIPHERAL [None]
  - WEIGHT DECREASED [None]
